FAERS Safety Report 13982196 (Version 3)
Quarter: 2017Q4

REPORT INFORMATION
  Report Type: Report from Study
  Country: IT (occurrence: IT)
  Receive Date: 20170918
  Receipt Date: 20171121
  Transmission Date: 20180321
  Serious: Yes (Death, Other)
  Sender: FDA-Public Use
  Company Number: PHHO2010IT04998

PATIENT
  Age: 55 Year
  Sex: Male

DRUGS (3)
  1. CGP 41251 [Suspect]
     Active Substance: MIDOSTAURIN
     Indication: ACUTE MYELOID LEUKAEMIA
     Dosage: 100 MG, BID
     Route: 048
     Dates: start: 20100319
  2. CYTARABINE. [Suspect]
     Active Substance: CYTARABINE
     Indication: PRODUCT USED FOR UNKNOWN INDICATION
     Dosage: 200 MG/M2, DAYS 1-7
     Route: 065
     Dates: start: 20100319, end: 20100325
  3. DAUNORUBICIN [Suspect]
     Active Substance: DAUNORUBICIN
     Indication: PRODUCT USED FOR UNKNOWN INDICATION
     Dosage: 60 MG/M2, DAYS 1, 2, 3
     Route: 042
     Dates: start: 20100319, end: 20100321

REACTIONS (5)
  - Pneumonia [Fatal]
  - Acute respiratory failure [Fatal]
  - Mucosal inflammation [Not Recovered/Not Resolved]
  - Lung infection [Fatal]
  - Septic shock [Fatal]

NARRATIVE: CASE EVENT DATE: 20100326
